FAERS Safety Report 8985209 (Version 3)
Quarter: 2013Q1

REPORT INFORMATION
  Report Type: Spontaneous
  Country: JP (occurrence: JP)
  Receive Date: 20121226
  Receipt Date: 20130307
  Transmission Date: 20140127
  Serious: Yes (Other)
  Sender: FDA-Public Use
  Company Number: JP-JNJFOC-20121210954

PATIENT
  Age: 41 Year
  Sex: Male

DRUGS (4)
  1. REMICADE [Suspect]
     Indication: ANTERIOR CHAMBER INFLAMMATION
     Route: 042
  2. REMICADE [Suspect]
     Indication: BEHCET^S SYNDROME
     Route: 042
  3. CORTICOSTEROID [Concomitant]
     Indication: PREMEDICATION
     Route: 042
  4. ACETAMINOPHEN [Concomitant]
     Indication: PREMEDICATION
     Route: 048

REACTIONS (2)
  - Thrombophlebitis superficial [Unknown]
  - Nonspecific reaction [Unknown]
